FAERS Safety Report 5383599-0 (Version None)
Quarter: 2007Q3

REPORT INFORMATION
  Report Type: 
  Country: None (occurrence: None)
  Receive Date: 20070706
  Receipt Date: 20070621
  Transmission Date: 20080115
  Serious: Yes (Disabling)
  Sender: FDA-Public Use
  Company Number: 2007BI013701

PATIENT
  Age: 59 Year
  Sex: Female

DRUGS (5)
  1. ZEVALIN [Suspect]
     Indication: B-CELL LYMPHOMA
     Dosage: 975 MBQ; IV
     Route: 042
     Dates: start: 20070316, end: 20070316
  2. PANTOPRAZOLE SODIUM [Concomitant]
  3. IBUMAX [Concomitant]
  4. PRIMPERAN INJ [Concomitant]
  5. KYTRIL [Concomitant]

REACTIONS (1)
  - BONE MARROW FAILURE [None]
